FAERS Safety Report 10832736 (Version 1)
Quarter: 2015Q1

REPORT INFORMATION
  Report Type: Report from Study
  Country: US (occurrence: US)
  Receive Date: 20150219
  Receipt Date: 20150219
  Transmission Date: 20150721
  Serious: No
  Sender: FDA-Public Use
  Company Number: US-ABBVIE-14P-163-1196122-00

PATIENT
  Age: 52 Year
  Sex: Female

DRUGS (15)
  1. DILAUDID [Concomitant]
     Active Substance: HYDROMORPHONE HYDROCHLORIDE
     Indication: PAIN
     Dosage: UP TO 2 TIMES DAILY AS NEEDED
  2. MULTIVITAMIN [Concomitant]
     Active Substance: VITAMINS
     Indication: VITAMIN SUPPLEMENTATION
  3. SYMBICORT [Concomitant]
     Active Substance: BUDESONIDE\FORMOTEROL FUMARATE DIHYDRATE
     Indication: CHRONIC OBSTRUCTIVE PULMONARY DISEASE
  4. HYDROCHLOROTHIAZIDE. [Concomitant]
     Active Substance: HYDROCHLOROTHIAZIDE
     Indication: CARDIOVASCULAR DISORDER
  5. IMODIUM [Concomitant]
     Active Substance: LOPERAMIDE HYDROCHLORIDE
     Indication: DIARRHOEA
     Dosage: AS NEEDED
  6. CELEBREX [Concomitant]
     Active Substance: CELECOXIB
     Indication: BACK DISORDER
  7. PENTASA [Concomitant]
     Active Substance: MESALAMINE
     Indication: CROHN^S DISEASE
  8. GRALISE [Concomitant]
     Active Substance: GABAPENTIN
     Indication: BACK DISORDER
     Dosage: AT BEDTIME
  9. CLOPIDOGREL [Concomitant]
     Active Substance: CLOPIDOGREL BISULFATE
     Indication: PRODUCT USED FOR UNKNOWN INDICATION
  10. VITAMIN D2 + CALCIUM [Concomitant]
     Indication: VITAMIN SUPPLEMENTATION
  11. METOPROLOL [Concomitant]
     Active Substance: METOPROLOL
     Indication: BLOOD PRESSURE INCREASED
     Dosage: AS NEEDED
  12. RESTORIL [Concomitant]
     Active Substance: TEMAZEPAM
     Indication: INSOMNIA
  13. POTASSIUM [Concomitant]
     Active Substance: POTASSIUM
     Indication: MINERAL SUPPLEMENTATION
  14. MEGA RED [Concomitant]
     Indication: VITAMIN SUPPLEMENTATION
  15. HUMIRA [Suspect]
     Active Substance: ADALIMUMAB
     Indication: CROHN^S DISEASE
     Dates: start: 20131104, end: 20131216

REACTIONS (1)
  - Crohn^s disease [Not Recovered/Not Resolved]

NARRATIVE: CASE EVENT DATE: 20140113
